FAERS Safety Report 6262377-4 (Version None)
Quarter: 2009Q3

REPORT INFORMATION
  Report Type: 
  Country: None (occurrence: None)
  Receive Date: 20090701
  Receipt Date: 20090526
  Transmission Date: 20100115
  Serious: Yes (Other)
  Sender: FDA-Public Use
  Company Number: 188619USA

PATIENT
  Sex: Female

DRUGS (1)
  1. SERTRALINE HYDROCHLORIDE [Suspect]
     Indication: POSTPARTUM DEPRESSION
     Dosage: 50 MG, ORAL
     Route: 048
     Dates: start: 20081002

REACTIONS (7)
  - CONFUSIONAL STATE [None]
  - CRYING [None]
  - DEPRESSION [None]
  - HYPOAESTHESIA ORAL [None]
  - RASH PRURITIC [None]
  - SLEEP DISORDER [None]
  - SUICIDAL IDEATION [None]
